FAERS Safety Report 16748981 (Version 1)
Quarter: 2019Q3

REPORT INFORMATION
  Report Type: Report from Study
  Country: None (occurrence: RO)
  Receive Date: 20190828
  Receipt Date: 20190828
  Transmission Date: 20191005
  Serious: Yes (Death)
  Sender: FDA-Public Use
  Company Number: RO-ABBVIE-19K-135-2903836-00

PATIENT
  Sex: Male

DRUGS (1)
  1. DUODOPA [Suspect]
     Active Substance: CARBIDOPA\LEVODOPA
     Indication: PARKINSON^S DISEASE
     Dosage: DM=0.00 DC=6.80 ED=2.50 NRED=0; DMN=0.00 DCN=3.00 EDN=3.00 NREDN=0
     Route: 050
     Dates: start: 20170207, end: 20190823

REACTIONS (3)
  - Pneumonia [Fatal]
  - Sepsis [Fatal]
  - Cardio-respiratory arrest [Fatal]
